FAERS Safety Report 6177781-2 (Version None)
Quarter: 2009Q2

REPORT INFORMATION
  Report Type: 
  Country: None (occurrence: None)
  Receive Date: 20090501
  Receipt Date: 20090501
  Transmission Date: 20091009
  Serious: Yes (Life-Threatening)
  Sender: FDA-Public Use
  Company Number: None

PATIENT
  Age: 63 Year
  Sex: Female

DRUGS (2)
  1. NPH INSULIN [Suspect]
     Indication: HYPERGLYCAEMIA
     Dosage: 10UNITS SQ X 1
     Route: 058
     Dates: start: 20090310
  2. OXAZEPAM [Concomitant]

REACTIONS (4)
  - BLOOD GLUCOSE DECREASED [None]
  - BLOOD PRESSURE INCREASED [None]
  - CREATININE RENAL CLEARANCE DECREASED [None]
  - SOMNOLENCE [None]
